FAERS Safety Report 16722278 (Version 1)
Quarter: 2019Q3

REPORT INFORMATION
  Report Type: Spontaneous
  Country: US (occurrence: US)
  Receive Date: 20190820
  Receipt Date: 20190820
  Transmission Date: 20191005
  Serious: No
  Sender: FDA-Public Use
  Company Number: US-009507513-1908USA004613

PATIENT
  Age: 32 Year
  Sex: Female

DRUGS (7)
  1. METHYLPREDNISOLONE. [Concomitant]
     Active Substance: METHYLPREDNISOLONE
     Dosage: UNK
     Dates: start: 20190426, end: 20190809
  2. GANIRELIX ACETATE INJECTION [Suspect]
     Active Substance: GANIRELIX ACETATE
     Indication: INFERTILITY FEMALE
     Dosage: 250 MICROGRAM, WHEN DIRECTED
     Route: 058
     Dates: start: 20190429
  3. PREGNYL [Concomitant]
     Active Substance: CHORIOGONADOTROPIN ALFA
     Dosage: STRENGTH: 10000 UNITS
     Dates: start: 20190426, end: 20190809
  4. PROGESTERONE. [Concomitant]
     Active Substance: PROGESTERONE
     Dosage: STRNEGTH: 50 MG/ML
     Dates: start: 20190426, end: 20190809
  5. TRETOQUINOL HYDROCHLORIDE MONOHYDRATE. [Concomitant]
     Active Substance: TRETOQUINOL HYDROCHLORIDE MONOHYDRATE
     Dosage: STRENGTH: 900 UNITS
     Dates: start: 20190426, end: 20190809
  6. MENOPUR [Concomitant]
     Active Substance: FOLLITROPIN\LUTEINIZING HORMONE
     Dosage: STRENGTH: 75 UNITS
     Dates: start: 20190426, end: 20190809
  7. ENDOMETRIN [Concomitant]
     Active Substance: PROGESTERONE
     Dosage: UNK
     Dates: start: 20190426, end: 20190809

REACTIONS (1)
  - Injection site pruritus [Unknown]

NARRATIVE: CASE EVENT DATE: 20190808
